FAERS Safety Report 8841945 (Version 1)
Quarter: 2012Q4

REPORT INFORMATION
  Report Type: 
  Country: US (occurrence: US)
  Receive Date: 20121016
  Receipt Date: 20121016
  Transmission Date: 20130627
  Serious: No
  Sender: FDA-Public Use
  Company Number: US-BAYER-2012-106687

PATIENT
  Age: 62 Year
  Sex: Male

DRUGS (5)
  1. LEVITRA [Suspect]
     Indication: ERECTILE DYSFUNCTION
     Dosage: 20 mg, 4 or 5 doses
     Route: 048
  2. ATENOLOL [Concomitant]
     Dosage: 50 mg, UNK
  3. FLECAINIDE [Concomitant]
     Dosage: 50 mg, UNK
  4. WARFARIN [Concomitant]
     Dosage: 5 mg, UNK
  5. HYDROCHLOROTHIAZIDE W/LOSARTAN [Concomitant]
     Dosage: 50-12.5mg tab

REACTIONS (1)
  - Erectile dysfunction [None]
